FAERS Safety Report 8124177-X (Version None)
Quarter: 2012Q1

REPORT INFORMATION
  Report Type: 
  Country: None (occurrence: None)
  Receive Date: 20120209
  Receipt Date: 20120130
  Transmission Date: 20120608
  Serious: Yes (Hospitalization)
  Sender: FDA-Public Use
  Company Number: US-BAYER-2011-092289

PATIENT
  Age: 34 Year
  Sex: Female
  Weight: 77.098 kg

DRUGS (26)
  1. VENTOLIN HFA [Concomitant]
     Dosage: UNK
     Dates: start: 20090105
  2. EFFEXOR [Concomitant]
     Indication: DEPRESSION
     Dosage: UNK
     Dates: start: 20090921, end: 20091201
  3. YAZ [Suspect]
     Indication: CONTRACEPTION
     Dosage: UNK
     Route: 048
     Dates: start: 20080406, end: 20091121
  4. PROVENTIL [Concomitant]
     Dosage: UNK
     Dates: start: 20080204
  5. SINGULAIR [Concomitant]
     Dosage: UNK
     Dates: start: 20100308
  6. CLONAZEPAM [Concomitant]
     Indication: ANXIETY
     Dosage: 0.5 MG, UNK
     Dates: start: 20090921, end: 20100701
  7. ALPRAZOLAM [Concomitant]
     Indication: PANIC ATTACK
     Dosage: 0.5 MG, UNK
     Dates: start: 20091113
  8. FLOVENT [Concomitant]
     Dosage: UNK
     Dates: start: 20091201
  9. NSAID'S [Concomitant]
     Dosage: UNK
     Dates: start: 20010101
  10. XOPENEX [Concomitant]
     Indication: ASTHMA
     Dosage: 45 UNK, UNK
     Dates: start: 20090301, end: 20091201
  11. CHERATUSSIN AC [Concomitant]
     Dosage: UNK
     Dates: start: 20091110, end: 20091116
  12. ASMANEX TWISTHALER [Concomitant]
  13. AZITHROMYCIN [Concomitant]
     Dosage: 250 MG, UNK
     Dates: start: 20091113
  14. DUONEB [Concomitant]
     Dosage: UNK
     Dates: start: 20091201
  15. TRI-SPRINTEC [Concomitant]
     Indication: CONTRACEPTION
     Dosage: UNK
     Route: 048
     Dates: start: 20091101, end: 20091201
  16. ORTHO TRI-CYCLEN [Concomitant]
  17. PROVENTIL [Concomitant]
     Dosage: UNK
     Dates: start: 20090324
  18. FEXOFENADINE [Concomitant]
     Indication: MULTIPLE ALLERGIES
     Dosage: 180 MG, UNK
     Dates: start: 20090501, end: 20100701
  19. ZOLPIDEM [Concomitant]
     Indication: INSOMNIA
     Dosage: 10 MG, UNK
     Dates: start: 20091019, end: 20100701
  20. TAMIFLU [Concomitant]
     Dosage: 75 MG, UNK
     Dates: start: 20091110
  21. PREDNISONE [Concomitant]
     Dosage: UNK
     Dates: start: 20091112
  22. AZITHROMYCIN [Concomitant]
     Dosage: 250 MG, UNK
     Dates: start: 20091220
  23. CITALOPRAM [Concomitant]
     Indication: DEPRESSION
     Dosage: UNK
     Dates: start: 20091220, end: 20100701
  24. SINGULAIR [Concomitant]
     Dosage: UNK
     Dates: start: 20090518
  25. SINGULAIR [Concomitant]
     Dosage: UNK
     Dates: start: 20091201
  26. ALBUTEROL [Concomitant]
     Indication: ASTHMA
     Dosage: UNK
     Dates: start: 20091116, end: 20100308

REACTIONS (2)
  - DEEP VEIN THROMBOSIS [None]
  - PULMONARY EMBOLISM [None]
